FAERS Safety Report 7522833-5 (Version None)
Quarter: 2011Q2

REPORT INFORMATION
  Report Type: 
  Country: None (occurrence: None)
  Receive Date: 20110603
  Receipt Date: 20110524
  Transmission Date: 20111010
  Serious: Yes (Other)
  Sender: FDA-Public Use
  Company Number: PHHY2011AU47708

PATIENT
  Age: 71 Year
  Sex: Female

DRUGS (2)
  1. INDAPAMIDE [Suspect]
  2. CARBAMAZEPINE [Suspect]

REACTIONS (2)
  - MENTAL IMPAIRMENT [None]
  - HYPONATRAEMIA [None]
